FAERS Safety Report 8022887-6 (Version None)
Quarter: 2012Q1

REPORT INFORMATION
  Report Type: 
  Country: None (occurrence: None)
  Receive Date: 20120104
  Receipt Date: 20111220
  Transmission Date: 20120608
  Serious: Yes (Death)
  Sender: FDA-Public Use
  Company Number: CN-CTI_01425_2011

PATIENT
  Sex: Male

DRUGS (6)
  1. HAEMOCOAGULASE (HAEMOCOAGULASE) [Concomitant]
     Dosage: DF
     Dates: start: 20110919, end: 20110923
  2. ETAMSILATE (ETAMSILATE) [Concomitant]
     Dosage: DF
     Dates: start: 20110919, end: 20110923
  3. PHENOBARBITAL TAB [Concomitant]
     Dosage: DF
  4. PIPERACILLIN W/SULBACTAM SODIUM (NO PREF. NAME) [Suspect]
     Indication: PNEUMONIA
     Dosage: DAILY DOSE 0.18 GRAMS;TWICE A DAY
     Route: 042
     Dates: start: 20110919, end: 20110923
  5. CUROSURF [Suspect]
     Indication: NEONATAL RESPIRATORY DISTRESS SYNDROME
     Dosage: DAILY DOSE 240 MILLIGRAMS;DAILY
     Route: 039
     Dates: start: 20110919, end: 20110920
  6. CEFODIZIME (CEFODIZIME) [Concomitant]
     Dosage: DF
     Dates: start: 20110919, end: 20110923

REACTIONS (12)
  - PULMONARY HAEMORRHAGE [None]
  - DISSEMINATED INTRAVASCULAR COAGULATION [None]
  - NEONATAL PNEUMONIA [None]
  - HYPOCALCAEMIA [None]
  - ANAEMIA NEONATAL [None]
  - CARDIO-RESPIRATORY ARREST [None]
  - NEONATAL RESPIRATORY DISTRESS SYNDROME [None]
  - LOW BIRTH WEIGHT BABY [None]
  - JAUNDICE NEONATAL [None]
  - HYPERGLYCAEMIA [None]
  - SHOCK [None]
  - METABOLIC ACIDOSIS [None]
